FAERS Safety Report 7270940 (Version 2)
Quarter: 2013Q2

REPORT INFORMATION
  Report Type: Spontaneous
  Country: US (occurrence: US)
  Receive Date: 20100204
  Receipt Date: 20130508
  Transmission Date: 20140414
  Serious: Yes (Hospitalization)
  Sender: FDA-Public Use
  Company Number: US-ASTRAZENECA-2010SE03472

PATIENT
  Age: 372 Month
  Sex: Male
  Weight: 90.7 kg

DRUGS (8)
  1. SEROQUEL [Suspect]
     Indication: BIPOLAR I DISORDER
     Dosage: 1 DOSE IN THE AM AND 2 DOSES IN THE PM.
     Route: 048
     Dates: start: 200903
  2. SEROQUEL [Suspect]
     Indication: BIPOLAR I DISORDER
     Dosage: 2 DOSE IN THE AM AND 2 DOSES IN THE PM.
     Route: 048
     Dates: start: 20091230
  3. NEXIUM [Suspect]
     Indication: GASTROOESOPHAGEAL REFLUX DISEASE
     Route: 048
  4. CLONIDINE [Concomitant]
     Route: 048
  5. LORAZEPAM [Concomitant]
     Indication: ANXIETY
     Route: 048
  6. SYMBALTA [Concomitant]
     Indication: DEPRESSION
     Route: 048
  7. ADVAIR [Concomitant]
     Indication: ASTHMA
     Dosage: DAILY.
     Route: 055
  8. VENTOLIN [Concomitant]
     Indication: ASTHMA
     Dosage: AS REQUIRED.
     Route: 055

REACTIONS (5)
  - Alcohol poisoning [Recovering/Resolving]
  - Regurgitation [Unknown]
  - Malaise [Unknown]
  - Insomnia [Recovered/Resolved]
  - Drug dose omission [Unknown]
